FAERS Safety Report 6011502-9 (Version None)
Quarter: 2008Q4

REPORT INFORMATION
  Report Type: 
  Country: None (occurrence: None)
  Receive Date: 20081218
  Receipt Date: 19960111
  Transmission Date: 20090506
  Serious: Yes (Death, Other)
  Sender: FDA-Public Use
  Company Number: AU-ROCHE-69946

PATIENT
  Age: 57 Year
  Sex: Female
  Weight: 80 kg

DRUGS (7)
  1. ROCALTROL [Suspect]
     Indication: DRUG USE FOR UNKNOWN INDICATION
     Dosage: DOSE AND UNITS REPORTED AS: 25O RG
     Route: 065
     Dates: start: 19950929
  2. METOPROLOL TARTRATE [Suspect]
     Route: 065
  3. CAPTOPRIL [Suspect]
     Indication: HYPERTENSION
     Route: 065
  4. NIFEDIPINE [Suspect]
     Route: 065
  5. LOPID [Suspect]
     Route: 065
     Dates: start: 19950929
  6. FRUSEMIDE [Suspect]
     Route: 065
  7. ISORDIL [Suspect]
     Route: 065

REACTIONS (4)
  - ANGIOEDEMA [None]
  - DEATH [None]
  - OBSTRUCTIVE AIRWAYS DISORDER [None]
  - RESPIRATORY DISTRESS [None]
